FAERS Safety Report 8033526-2 (Version None)
Quarter: 2012Q1

REPORT INFORMATION
  Report Type: 
  Country: None (occurrence: None)
  Receive Date: 20120110
  Receipt Date: 20120103
  Transmission Date: 20120608
  Serious: Yes (Hospitalization)
  Sender: FDA-Public Use
  Company Number: FR-JNJFOC-20110808281

PATIENT
  Sex: Male
  Weight: 90 kg

DRUGS (8)
  1. CANDESARTAN CILEXETIL [Concomitant]
     Indication: HYPERTENSION
     Route: 048
  2. TRANSIPEG [Concomitant]
     Indication: LAXATIVE SUPPORTIVE CARE
     Dosage: ON DEMAND
     Route: 048
  3. LERCANIDIPINE [Concomitant]
     Indication: HYPERTENSION
     Route: 048
  4. PREDNISOLONE [Suspect]
     Indication: PROSTATE CANCER
     Route: 065
  5. PSYLLIUM [Concomitant]
     Indication: PRODUCT USED FOR UNKNOWN INDICATION
     Route: 048
  6. ABIRATERONE ACETATE [Suspect]
     Route: 048
  7. ABIRATERONE ACETATE [Suspect]
     Indication: PROSTATE CANCER
     Route: 048
     Dates: start: 20110729, end: 20110812
  8. ACETAMINOPHEN [Concomitant]
     Indication: ANALGESIC THERAPY
     Dosage: ON DEMAND
     Route: 048

REACTIONS (1)
  - DERMATITIS BULLOUS [None]
